FAERS Safety Report 7815262-8 (Version None)
Quarter: 2011Q4

REPORT INFORMATION
  Report Type: 
  Country: None (occurrence: None)
  Receive Date: 20111014
  Receipt Date: 20111013
  Transmission Date: 20120403
  Serious: Yes (Hospitalization)
  Sender: FDA-Public Use
  Company Number: US-ABBOTT-11P-163-0863365-00

PATIENT
  Age: 28 Year
  Sex: Female

DRUGS (2)
  1. HUMIRA [Suspect]
     Indication: CROHN'S DISEASE
  2. PREDS [Concomitant]
     Indication: PRODUCT USED FOR UNKNOWN INDICATION
     Dosage: TAPERED FROM 120 MG TO 15 MG

REACTIONS (7)
  - PYREXIA [None]
  - LABORATORY TEST ABNORMAL [None]
  - COLITIS [None]
  - DRUG SPECIFIC ANTIBODY PRESENT [None]
  - FEELING ABNORMAL [None]
  - MALAISE [None]
  - DIARRHOEA [None]
